FAERS Safety Report 6842909-5 (Version None)
Quarter: 2010Q3

REPORT INFORMATION
  Report Type: 
  Country: None (occurrence: None)
  Receive Date: 20100714
  Receipt Date: 20070806
  Transmission Date: 20110219
  Serious: No
  Sender: FDA-Public Use
  Company Number: US-PFIZER INC-2007066441

PATIENT
  Sex: Female
  Weight: 86.363 kg

DRUGS (6)
  1. CHANTIX [Suspect]
     Indication: SMOKING CESSATION THERAPY
     Dates: start: 20070802
  2. MULTI-VITAMINS [Concomitant]
  3. VITAMIN B COMPLEX CAP [Concomitant]
  4. LEXAPRO [Concomitant]
  5. AMBIEN [Concomitant]
  6. DOCUSATE SODIUM [Concomitant]

REACTIONS (2)
  - VAGINAL DISCHARGE [None]
  - VAGINAL HAEMORRHAGE [None]
